FAERS Safety Report 21997879 (Version 1)
Quarter: 2023Q1

REPORT INFORMATION
  Report Type: Report from Study
  Country: FR (occurrence: FR)
  Receive Date: 20230216
  Receipt Date: 20230216
  Transmission Date: 20230418
  Serious: Yes (Disabling)
  Sender: FDA-Public Use
  Company Number: FR-SA-SAC20230213001167

PATIENT
  Age: 75 Year
  Sex: Female
  Weight: 56 kg

DRUGS (6)
  1. ISATUXIMAB [Suspect]
     Active Substance: ISATUXIMAB
     Indication: Plasma cell myeloma
     Dosage: 560 MG, QD
     Dates: start: 20220221, end: 20220221
  2. ISATUXIMAB [Suspect]
     Active Substance: ISATUXIMAB
     Dosage: 165.76 MG, QD
     Dates: start: 20220912, end: 20220912
  3. LENALIDOMIDE [Suspect]
     Active Substance: LENALIDOMIDE
     Indication: Plasma cell myeloma
     Dosage: 25 MG, QD
     Route: 065
     Dates: start: 20220221, end: 20220221
  4. LENALIDOMIDE [Suspect]
     Active Substance: LENALIDOMIDE
     Dosage: 25 MG, QD
     Dates: start: 20220911, end: 20220911
  5. DEXAMETHASONE [Concomitant]
     Active Substance: DEXAMETHASONE
     Indication: Plasma cell myeloma
     Dosage: 20 MG, QD
     Dates: start: 20220221, end: 20220221
  6. DEXAMETHASONE [Concomitant]
     Active Substance: DEXAMETHASONE
     Dosage: 20 MG, QD
     Dates: start: 20220912, end: 20220912

REACTIONS (1)
  - Enterobacter infection [Recovered/Resolved]

NARRATIVE: CASE EVENT DATE: 20220912
